FAERS Safety Report 5798110-X (Version None)
Quarter: 2008Q2

REPORT INFORMATION
  Report Type: 
  Country: None (occurrence: None)
  Receive Date: 20080623
  Receipt Date: 20080301
  Transmission Date: 20081010
  Serious: Yes (Life-Threatening)
  Sender: FDA-Public Use
  Company Number: 8031490

PATIENT
  Age: 52 Year
  Sex: Male
  Weight: 109 kg

DRUGS (1)
  1. XYZAL [Suspect]
     Indication: SEASONAL ALLERGY
     Dosage: 5 MG ONCE
     Dates: start: 20080225, end: 20080225

REACTIONS (1)
  - ANAPHYLACTIC REACTION [None]
